FAERS Safety Report 20524601 (Version 2)
Quarter: 2022Q1

REPORT INFORMATION
  Report Type: Report from Study
  Country: CO (occurrence: CO)
  Receive Date: 20220228
  Receipt Date: 20220317
  Transmission Date: 20220424
  Serious: Yes (Death, Hospitalization)
  Sender: FDA-Public Use
  Company Number: CO-NOVARTISPH-NVSC2020CO193185

PATIENT
  Age: 61 Year
  Sex: Female

DRUGS (4)
  1. KISQALI [Suspect]
     Active Substance: RIBOCICLIB
     Indication: Breast cancer metastatic
     Dosage: 600 MG, QD (TABLET)
     Route: 048
  2. KISQALI [Suspect]
     Active Substance: RIBOCICLIB
     Indication: Hormone receptor positive breast cancer
  3. KISQALI [Suspect]
     Active Substance: RIBOCICLIB
     Indication: Human epidermal growth factor receptor negative
  4. FEMARA [Suspect]
     Active Substance: LETROZOLE
     Indication: Breast cancer
     Dosage: UNK
     Route: 048

REACTIONS (18)
  - Death [Fatal]
  - Urinary tract infection [Unknown]
  - Pyrexia [Unknown]
  - Malaise [Unknown]
  - Chills [Unknown]
  - Illness [Unknown]
  - Hypokinesia [Unknown]
  - Face oedema [Unknown]
  - Feeling abnormal [Unknown]
  - Pain in extremity [Unknown]
  - Hypoaesthesia [Unknown]
  - Musculoskeletal chest pain [Unknown]
  - Swelling [Unknown]
  - Paraesthesia [Unknown]
  - Fear [Unknown]
  - Oedema peripheral [Unknown]
  - Fatigue [Unknown]
  - Anxiety [Unknown]

NARRATIVE: CASE EVENT DATE: 20220226
